FAERS Safety Report 21369695 (Version 1)
Quarter: 2022Q3

REPORT INFORMATION
  Report Type: Spontaneous
  Country: US (occurrence: None)
  Receive Date: 20220922
  Receipt Date: 20220922
  Transmission Date: 20221027
  Serious: Yes (Other)
  Sender: FDA-Public Use
  Company Number: None

PATIENT
  Age: 18 Year
  Sex: Female

DRUGS (1)
  1. EMGALITY [Suspect]
     Active Substance: GALCANEZUMAB-GNLM

REACTIONS (6)
  - Malaise [None]
  - Influenza like illness [None]
  - Hypersomnia [None]
  - Bradyphrenia [None]
  - Feeling abnormal [None]
  - Migraine [None]

NARRATIVE: CASE EVENT DATE: 20220921
